FAERS Safety Report 23987293 (Version 1)
Quarter: 2024Q2

REPORT INFORMATION
  Report Type: Report from Study
  Country: GR (occurrence: GR)
  Receive Date: 20240618
  Receipt Date: 20240618
  Transmission Date: 20240716
  Serious: Yes (Other)
  Sender: FDA-Public Use
  Company Number: GR-KARYOPHARM-2024KPT001194

PATIENT
  Age: 68 Year
  Sex: Male
  Weight: 63 kg

DRUGS (8)
  1. SELINEXOR [Suspect]
     Active Substance: SELINEXOR
     Indication: Plasma cell myeloma
     Dosage: 100 MG, WEEKLY
     Route: 048
     Dates: start: 202404, end: 202404
  2. CYCLOPHOSPHAMIDE [Concomitant]
     Active Substance: CYCLOPHOSPHAMIDE
     Indication: Plasma cell myeloma
     Route: 048
  3. TROFOCARD [Concomitant]
     Indication: Magnesium deficiency
     Dosage: UNK, BID
     Route: 048
  4. SULFAMETHOXAZOLE\TRIMETHOPRIM [Concomitant]
     Active Substance: SULFAMETHOXAZOLE\TRIMETHOPRIM
     Indication: Anti-infective therapy
     Dosage: 800+160 EVERY SECOND DAY (1 IN 2 D)
     Route: 048
  5. NEXIUM I.V. [Concomitant]
     Active Substance: ESOMEPRAZOLE SODIUM
     Indication: Peptic ulcer
     Dosage: 1 IN 1 D
     Route: 048
  6. NEXIUM I.V. [Concomitant]
     Active Substance: ESOMEPRAZOLE SODIUM
     Indication: Gastrooesophageal reflux disease
  7. ASPIRIN [Concomitant]
     Active Substance: ASPIRIN
     Indication: Antithrombin III
     Dosage: 1 PER DAY (1 IN 1 D)
     Route: 048
  8. ISTERGAN [Concomitant]
     Indication: Antiviral treatment
     Dosage: 1 PER DAY (1 IN 1 D)
     Route: 048

REACTIONS (5)
  - Herpes zoster [Recovered/Resolved]
  - Monoclonal immunoglobulin present [Not Recovered/Not Resolved]
  - Disease progression [Not Recovered/Not Resolved]
  - Skin hyperpigmentation [Unknown]
  - Drug ineffective [Unknown]

NARRATIVE: CASE EVENT DATE: 20240101
